FAERS Safety Report 17027142 (Version 1)
Quarter: 2019Q4

REPORT INFORMATION
  Report Type: Spontaneous
  Country: US (occurrence: US)
  Receive Date: 20191009
  Receipt Date: 20191009
  Transmission Date: 20200122
  Serious: Yes (Other)
  Sender: FDA-Public Use
  Company Number: None

PATIENT
  Age: 67 Year
  Sex: Female
  Weight: 77.11 kg

DRUGS (6)
  1. VITAMINS [Concomitant]
     Active Substance: VITAMINS
  2. CITRACEL [Concomitant]
  3. FISH OIL [Concomitant]
     Active Substance: FISH OIL
  4. OMEGA 3 [Concomitant]
     Active Substance: OMEGA-3 FATTY ACIDS
  5. ADVIL PRN [Concomitant]
  6. ZOLPIDEM TARTRATE ORAL TABLET 10MG [Suspect]
     Active Substance: ZOLPIDEM TARTRATE
     Indication: INSOMNIA
     Dates: start: 20180806, end: 20180823

REACTIONS (12)
  - Insomnia [None]
  - Disturbance in attention [None]
  - Panic attack [None]
  - Crying [None]
  - Tremor [None]
  - Myalgia [None]
  - Suicidal ideation [None]
  - Chills [None]
  - Depressed mood [None]
  - Withdrawal syndrome [None]
  - Hallucination [None]
  - Tachyphrenia [None]

NARRATIVE: CASE EVENT DATE: 20180823
